FAERS Safety Report 7568241-2 (Version None)
Quarter: 2011Q2

REPORT INFORMATION
  Report Type: 
  Country: None (occurrence: None)
  Receive Date: 20110623
  Receipt Date: 20110613
  Transmission Date: 20111010
  Serious: Yes (Other)
  Sender: FDA-Public Use
  Company Number: JP-ROCHE-731754

PATIENT
  Age: 42 Year
  Sex: Female

DRUGS (26)
  1. VALGANCICLOVIR [Suspect]
     Route: 048
     Dates: start: 20100115, end: 20100125
  2. VALGANCICLOVIR [Suspect]
     Route: 048
     Dates: start: 20100204, end: 20100215
  3. NEORAL [Concomitant]
     Route: 048
     Dates: start: 20100115, end: 20100115
  4. MIYA BM [Concomitant]
     Route: 048
  5. NEORAL [Concomitant]
     Route: 048
     Dates: start: 20110103, end: 20110103
  6. NEORAL [Concomitant]
     Route: 048
     Dates: start: 20110105, end: 20110107
  7. NEORAL [Concomitant]
     Route: 048
     Dates: start: 20110108, end: 20110108
  8. SOLU-MEDROL [Concomitant]
     Route: 042
     Dates: start: 20100105, end: 20100109
  9. VALGANCICLOVIR [Suspect]
     Route: 048
     Dates: start: 20100128, end: 20100128
  10. LANSOPRAZOLE [Concomitant]
     Route: 048
  11. NEORAL [Concomitant]
     Route: 048
     Dates: start: 20100109, end: 20100109
  12. NEORAL [Concomitant]
     Route: 048
     Dates: start: 20100110, end: 20100110
  13. NEORAL [Concomitant]
     Route: 048
     Dates: start: 20100113, end: 20100113
  14. URSO 250 [Concomitant]
     Route: 048
  15. NEORAL [Concomitant]
     Route: 048
     Dates: start: 20100111, end: 20100111
  16. NEORAL [Concomitant]
     Route: 048
     Dates: start: 20100112, end: 20100112
  17. NEORAL [Concomitant]
     Route: 048
     Dates: start: 20100114, end: 20100114
  18. SOLU-MEDROL [Concomitant]
     Route: 042
     Dates: start: 20100110, end: 20100114
  19. VALGANCICLOVIR [Suspect]
     Indication: CYTOMEGALOVIRUS INFECTION
     Route: 048
     Dates: start: 20091229, end: 20100114
  20. LEVOFLOXACIN [Concomitant]
     Dates: start: 20091229, end: 20100107
  21. SOLU-MEDROL [Concomitant]
     Route: 042
     Dates: start: 20091231, end: 20100103
  22. NEORAL [Concomitant]
     Route: 048
     Dates: start: 20100101, end: 20100102
  23. VALGANCICLOVIR [Suspect]
     Route: 048
     Dates: start: 20100129, end: 20100129
  24. NEORAL [Concomitant]
     Route: 048
     Dates: end: 20091229
  25. NEORAL [Concomitant]
     Route: 048
     Dates: start: 20110104, end: 20110104
  26. SOLU-MEDROL [Concomitant]
     Route: 042
     Dates: end: 20091230

REACTIONS (4)
  - STOMATITIS [None]
  - HEPATIC FUNCTION ABNORMAL [None]
  - CYSTITIS HAEMORRHAGIC [None]
  - PLATELET COUNT DECREASED [None]
